FAERS Safety Report 18927492 (Version 1)
Quarter: 2021Q1

REPORT INFORMATION
  Report Type: Spontaneous
  Country: US (occurrence: US)
  Receive Date: 20210222
  Receipt Date: 20210222
  Transmission Date: 20210420
  Serious: Yes (Hospitalization)
  Sender: FDA-Public Use
  Company Number: None

PATIENT
  Age: 63 Year
  Sex: Male
  Weight: 91 kg

DRUGS (1)
  1. DURVALUMAB. [Suspect]
     Active Substance: DURVALUMAB
     Indication: SMALL CELL LUNG CANCER
     Route: 042
     Dates: start: 20200311, end: 20200509

REACTIONS (5)
  - Colitis [None]
  - Small intestinal obstruction [None]
  - Muscular weakness [None]
  - Diarrhoea [None]
  - Sepsis [None]

NARRATIVE: CASE EVENT DATE: 20200917
